FAERS Safety Report 9129590 (Version 1)
Quarter: 2013Q1

REPORT INFORMATION
  Report Type: Report from Study
  Country: US (occurrence: US)
  Receive Date: 20130228
  Receipt Date: 20130228
  Transmission Date: 20140127
  Serious: Yes (Other)
  Sender: FDA-Public Use
  Company Number: US-ROCHE-1194403

PATIENT
  Sex: Female
  Weight: 63.11 kg

DRUGS (8)
  1. XELODA [Suspect]
     Indication: COLORECTAL CANCER METASTATIC
     Route: 048
     Dates: start: 20120616, end: 201212
  2. XELODA [Suspect]
     Route: 048
     Dates: start: 201212, end: 201302
  3. XELODA [Suspect]
     Route: 048
     Dates: start: 201302
  4. BACTRIM [Concomitant]
     Indication: URINARY TRACT INFECTION
     Route: 048
  5. AMOXICILLIN [Concomitant]
     Indication: URINARY TRACT INFECTION
     Route: 048
  6. VITAMIN B12 [Concomitant]
     Route: 048
  7. VITAMIN C [Concomitant]
     Route: 048
  8. ANTIOXIDANT [Concomitant]
     Route: 048

REACTIONS (8)
  - Nephrostomy [Unknown]
  - Stent placement [Unknown]
  - Carcinoembryonic antigen increased [Unknown]
  - Skin discolouration [Unknown]
  - Skin discolouration [Unknown]
  - Skin discolouration [Unknown]
  - Dysgeusia [Not Recovered/Not Resolved]
  - Urinary tract infection [Not Recovered/Not Resolved]
